FAERS Safety Report 12068705 (Version 5)
Quarter: 2016Q2

REPORT INFORMATION
  Report Type: Spontaneous
  Country: DE (occurrence: DE)
  Receive Date: 20160211
  Receipt Date: 20160422
  Transmission Date: 20160815
  Serious: Yes (Life-Threatening, Hospitalization, Other)
  Sender: FDA-Public Use
  Company Number: DE-ELI_LILLY_AND_COMPANY-DE201602001432

PATIENT
  Sex: Male

DRUGS (4)
  1. CIALIS [Suspect]
     Active Substance: TADALAFIL
     Indication: ERECTILE DYSFUNCTION
     Dosage: 5 MG, UNKNOWN
     Route: 048
     Dates: start: 20121216
  2. NEBILET [Concomitant]
     Active Substance: NEBIVOLOL
     Dosage: 5 MG, UNK
  3. DELIX                              /00885601/ [Concomitant]
     Active Substance: RAMIPRIL
     Dosage: 2.5 MG, UNKNOWN
  4. INSPRA [Concomitant]
     Active Substance: EPLERENONE
     Dosage: 25 MG, UNK

REACTIONS (14)
  - Blood calcium decreased [Recovered/Resolved]
  - Renal failure [Unknown]
  - Acute kidney injury [Unknown]
  - Cardiac arrest [Recovered/Resolved with Sequelae]
  - Status epilepticus [Unknown]
  - Hypernatraemia [Unknown]
  - Thrombophlebitis [Unknown]
  - Cerebral ischaemia [Unknown]
  - Metabolic acidosis [Unknown]
  - Hyperkalaemia [Unknown]
  - Pneumonia aspiration [Unknown]
  - Shock [Unknown]
  - Sepsis [Unknown]
  - Sepsis [Unknown]

NARRATIVE: CASE EVENT DATE: 20121221
